FAERS Safety Report 25376129 (Version 1)
Quarter: 2025Q2

REPORT INFORMATION
  Report Type: Spontaneous
  Country: US (occurrence: US)
  Receive Date: 20250529
  Receipt Date: 20250529
  Transmission Date: 20250717
  Serious: No
  Sender: MERCK SHARP & DOHME LLC
  Company Number: US-009507513-2290526

PATIENT
  Sex: Female
  Weight: 76.6 kg

DRUGS (20)
  1. SOTATERCEPT [Suspect]
     Active Substance: SOTATERCEPT
     Indication: Product used for unknown indication
  2. SOTATERCEPT [Suspect]
     Active Substance: SOTATERCEPT
  3. SOTATERCEPT [Suspect]
     Active Substance: SOTATERCEPT
  4. SOTATERCEPT [Suspect]
     Active Substance: SOTATERCEPT
  5. REMODULIN [Suspect]
     Active Substance: TREPROSTINIL
     Indication: Pulmonary arterial hypertension
     Route: 058
  6. REMODULIN [Suspect]
     Active Substance: TREPROSTINIL
     Indication: Pulmonary arterial hypertension
     Route: 058
  7. REMODULIN [Suspect]
     Active Substance: TREPROSTINIL
     Indication: Pulmonary arterial hypertension
     Dates: start: 20230519
  8. VITAMINS [Concomitant]
     Active Substance: VITAMINS
  9. FUROSEMIDE [Concomitant]
     Active Substance: FUROSEMIDE
  10. ACETAMINOPHEN [Concomitant]
     Active Substance: ACETAMINOPHEN
  11. KLOR-CON M20 [Concomitant]
     Active Substance: POTASSIUM CHLORIDE
  12. SILDENAFIL [Concomitant]
     Active Substance: SILDENAFIL
  13. OXYGEN [Concomitant]
     Active Substance: OXYGEN
  14. DIGOXIN [Concomitant]
     Active Substance: DIGOXIN
  15. ESTRADIOL [Concomitant]
     Active Substance: ESTRADIOL
  16. WARFARIN SODIUM [Concomitant]
     Active Substance: WARFARIN SODIUM
  17. GUAIFENESIN AND CODEINE PHOSPHATE [Concomitant]
     Active Substance: CODEINE PHOSPHATE\GUAIFENESIN
  18. OXYCODONE HYDROCHLORIDE [Concomitant]
     Active Substance: OXYCODONE HYDROCHLORIDE
  19. VENTOLIN HFA [Concomitant]
     Active Substance: ALBUTEROL SULFATE
  20. TAMSULOSIN HYDROCHLORIDE [Concomitant]
     Active Substance: TAMSULOSIN HYDROCHLORIDE

REACTIONS (1)
  - Haemoglobin increased [Not Recovered/Not Resolved]
